FAERS Safety Report 4346556-9 (Version None)
Quarter: 2004Q1

REPORT INFORMATION
  Report Type: 
  Country: None (occurrence: None)
  Receive Date: 20040325
  Receipt Date: 20031222
  Transmission Date: 20041129
  Serious: No
  Sender: FDA-Public Use
  Company Number: USA031255266

PATIENT
  Age: 46 Year
  Sex: Female

DRUGS (7)
  1. FORTEO [Suspect]
     Indication: OSTEOPOROSIS
     Dosage: 20 UG/DAY
     Dates: start: 20031219
  2. FLONASE [Concomitant]
  3. ALLEGRA [Concomitant]
  4. ZETIA [Concomitant]
  5. ALBUTEROL [Concomitant]
  6. CALCIUM [Concomitant]
  7. GABITRIL [Concomitant]

REACTIONS (6)
  - FATIGUE [None]
  - HEADACHE [None]
  - NAUSEA [None]
  - RESTLESSNESS [None]
  - TACHYCARDIA [None]
  - VOMITING [None]
